FAERS Safety Report 13097116 (Version 1)
Quarter: 2017Q1

REPORT INFORMATION
  Report Type: Spontaneous
  Country: US (occurrence: US)
  Receive Date: 20170107
  Receipt Date: 20170107
  Transmission Date: 20170428
  Serious: Yes (Other)
  Sender: FDA-Public Use
  Company Number: None

PATIENT
  Age: 51 Year
  Sex: Female
  Weight: 75.6 kg

DRUGS (1)
  1. PYLERA [Suspect]
     Active Substance: BISMUTH SUBCITRATE POTASSIUM\METRONIDAZOLE\TETRACYCLINE HYDROCHLORIDE
     Indication: HELICOBACTER INFECTION
     Dosage: ?          QUANTITY:120 CAPSULE(S);OTHER FREQUENCY:3 CAPSULES X  4;?
     Route: 048
     Dates: start: 20160702, end: 20160712

REACTIONS (4)
  - Memory impairment [None]
  - Abulia [None]
  - Mental impairment [None]
  - Injury [None]

NARRATIVE: CASE EVENT DATE: 20160715
